FAERS Safety Report 17885028 (Version 1)
Quarter: 2020Q2

REPORT INFORMATION
  Report Type: Spontaneous
  Country: US (occurrence: US)
  Receive Date: 20200611
  Receipt Date: 20200611
  Transmission Date: 20200714
  Serious: No
  Sender: FDA-Public Use
  Company Number: US-SA-2020SA137440

PATIENT
  Sex: Female

DRUGS (1)
  1. ENOXAPARIN SODIUM. [Suspect]
     Active Substance: ENOXAPARIN SODIUM
     Indication: EMPHYSEMA
     Dosage: UNK UNK, BID

REACTIONS (1)
  - Product use in unapproved indication [Unknown]
